FAERS Safety Report 10174100 (Version 2)
Quarter: 2014Q2

REPORT INFORMATION
  Report Type: Spontaneous
  Country: US (occurrence: US)
  Receive Date: 20140515
  Receipt Date: 20140619
  Transmission Date: 20141212
  Serious: Yes (Other)
  Sender: FDA-Public Use
  Company Number: US-BRISTOL-MYERS SQUIBB COMPANY-20711974

PATIENT
  Age: 69 Year
  Sex: Female
  Weight: 75.28 kg

DRUGS (5)
  1. ELIQUIS [Suspect]
     Indication: CEREBROVASCULAR ACCIDENT PROPHYLAXIS
     Dosage: SPLIT TO 2.5MGBID?29OCT13 TO 09DEC13?24TO28FEB14
     Route: 048
     Dates: start: 20131029, end: 20140228
  2. ASPIRIN [Concomitant]
  3. ZANTAC [Concomitant]
  4. XANAX [Concomitant]
  5. TYLENOL [Concomitant]

REACTIONS (4)
  - Arthralgia [Recovered/Resolved]
  - Myalgia [Not Recovered/Not Resolved]
  - Wrong technique in drug usage process [Unknown]
  - Fatigue [Recovered/Resolved]
